FAERS Safety Report 13314703 (Version 2)
Quarter: 2017Q2

REPORT INFORMATION
  Report Type: Spontaneous
  Country: US (occurrence: US)
  Receive Date: 20170309
  Receipt Date: 20170609
  Transmission Date: 20170830
  Serious: No
  Sender: FDA-Public Use
  Company Number: US-ASTELLAS-2017US008831

PATIENT
  Sex: Female

DRUGS (1)
  1. CRESEMBA [Suspect]
     Active Substance: ISAVUCONAZONIUM SULFATE
     Indication: ASPERGILLUS INFECTION
     Dosage: 2 CAPSULES, ONCE DAILY
     Route: 065
     Dates: start: 201702

REACTIONS (4)
  - Peripheral swelling [Recovering/Resolving]
  - Product packaging issue [Unknown]
  - Nerve compression [Unknown]
  - Cough [Recovering/Resolving]
